FAERS Safety Report 10816192 (Version 1)
Quarter: 2015Q1

REPORT INFORMATION
  Report Type: Report from Study
  Country: US (occurrence: US)
  Receive Date: 20150218
  Receipt Date: 20150218
  Transmission Date: 20150721
  Serious: No
  Sender: FDA-Public Use
  Company Number: US-ABBVIE-14K-163-1283883-00

PATIENT
  Age: 76 Year
  Sex: Female

DRUGS (3)
  1. HUMIRA [Suspect]
     Active Substance: ADALIMUMAB
     Dosage: DAY 8
     Dates: start: 20140808, end: 20140808
  2. HUMIRA [Suspect]
     Active Substance: ADALIMUMAB
     Indication: PSORIASIS
     Dosage: DAY 1 TOOK 2 PENS (80 MG)
     Dates: start: 20140801, end: 20140801
  3. HUMIRA [Suspect]
     Active Substance: ADALIMUMAB
     Dates: start: 20140822

REACTIONS (2)
  - Incorrect drug administration duration [Not Recovered/Not Resolved]
  - Incorrect drug administration duration [Recovered/Resolved]

NARRATIVE: CASE EVENT DATE: 20140822
